FAERS Safety Report 6145997-7 (Version None)
Quarter: 2009Q2

REPORT INFORMATION
  Report Type: 
  Country: None (occurrence: None)
  Receive Date: 20090407
  Receipt Date: 20090331
  Transmission Date: 20091009
  Serious: Yes (Hospitalization)
  Sender: FDA-Public Use
  Company Number: US-BIOGENIDEC-2008BI029509

PATIENT
  Age: 51 Year
  Sex: Female

DRUGS (2)
  1. AVONEX [Suspect]
     Indication: MULTIPLE SCLEROSIS
     Route: 030
     Dates: start: 20040228
  2. AVONEX [Suspect]
     Route: 030
     Dates: start: 19980701, end: 20030101

REACTIONS (4)
  - ARRHYTHMIA [None]
  - HYPOTENSION [None]
  - MULTIPLE SCLEROSIS [None]
  - MULTIPLE SCLEROSIS RELAPSE [None]
